FAERS Safety Report 7256965-6 (Version None)
Quarter: 2011Q1

REPORT INFORMATION
  Report Type: 
  Country: None (occurrence: None)
  Receive Date: 20110129
  Receipt Date: 20100725
  Transmission Date: 20110831
  Serious: No
  Sender: FDA-Public Use
  Company Number: US-ABBOTT-10P-163-0659663-00

PATIENT
  Age: 48 Year
  Sex: Female

DRUGS (8)
  1. TEMAZEPAM [Concomitant]
     Indication: INSOMNIA
  2. HUMIRA [Suspect]
     Indication: CROHN'S DISEASE
  3. OXYCONTIN [Concomitant]
     Indication: BACK PAIN
  4. LISINOPRIL [Concomitant]
     Indication: HYPERTENSION
  5. LAMOTRIZINE [Concomitant]
     Indication: PRODUCT USED FOR UNKNOWN INDICATION
  6. ADVAIR [Concomitant]
     Indication: ASTHMA
  7. SPIRIVA [Concomitant]
     Indication: ASTHMA
  8. ROXYCODONE [Concomitant]
     Indication: BACK PAIN

REACTIONS (1)
  - INJECTION SITE PAPULE [None]
